FAERS Safety Report 9324821 (Version 1)
Quarter: 2013Q2

REPORT INFORMATION
  Report Type: Spontaneous
  Country: US (occurrence: US)
  Receive Date: 20130603
  Receipt Date: 20130603
  Transmission Date: 20140414
  Serious: No
  Sender: FDA-Public Use
  Company Number: US-PFIZER INC-2013163489

PATIENT
  Sex: Female

DRUGS (2)
  1. LYRICA [Suspect]
     Indication: NEUROPATHY PERIPHERAL
     Dosage: UNK
  2. LYRICA [Suspect]
     Dosage: ONE CAPSULE OF 75MG IN MORNING AND TWO CAPSULES OF 150MG AT NIGHT
     Dates: end: 201305

REACTIONS (1)
  - Drug withdrawal syndrome [Not Recovered/Not Resolved]
